FAERS Safety Report 6889620-2 (Version None)
Quarter: 2010Q3

REPORT INFORMATION
  Report Type: 
  Country: None (occurrence: None)
  Receive Date: 20100730
  Receipt Date: 20080328
  Transmission Date: 20110219
  Serious: Yes (Other)
  Sender: FDA-Public Use
  Company Number: US-PFIZER INC-2008028155

PATIENT
  Sex: Female
  Weight: 77.272 kg

DRUGS (5)
  1. LIPITOR [Suspect]
     Indication: BLOOD CHOLESTEROL INCREASED
     Route: 048
     Dates: start: 20080226
  2. PLAVIX [Concomitant]
  3. COZAAR [Concomitant]
  4. PREVACID [Concomitant]
  5. ATENOLOL [Concomitant]

REACTIONS (4)
  - DEAFNESS [None]
  - HYPERSENSITIVITY [None]
  - MALAISE [None]
  - SWELLING FACE [None]
